FAERS Safety Report 5530153-3 (Version None)
Quarter: 2007Q4

REPORT INFORMATION
  Report Type: 
  Country: None (occurrence: None)
  Receive Date: 20071130
  Receipt Date: 20071121
  Transmission Date: 20080405
  Serious: Yes (Hospitalization)
  Sender: FDA-Public Use
  Company Number: US-JNJFOC-20070501478

PATIENT
  Sex: Female
  Weight: 56.25 kg

DRUGS (8)
  1. FENTANYL TRANSDERMAL SYSTEM [Suspect]
     Route: 062
  2. FENTANYL TRANSDERMAL SYSTEM [Suspect]
     Indication: PAIN
     Route: 062
  3. DILAUDID [Concomitant]
     Indication: BREAKTHROUGH PAIN
     Route: 048
  4. BACLOFEN [Concomitant]
     Indication: MUSCLE SPASMS
     Route: 048
  5. ASPIRIN [Concomitant]
     Indication: CARDIAC DISORDER
     Route: 048
  6. CALCIUM [Concomitant]
     Indication: BONE DISORDER
     Route: 048
  7. XANAX [Concomitant]
     Indication: ANXIETY
     Route: 048
  8. MULTI-VITAMIN [Concomitant]
     Route: 048

REACTIONS (4)
  - CONVULSION [None]
  - ELECTROCARDIOGRAM CHANGE [None]
  - MEDICATION ERROR [None]
  - PAIN [None]
